FAERS Safety Report 9146319 (Version 1)
Quarter: 2013Q1

REPORT INFORMATION
  Report Type: Spontaneous
  Country: GB (occurrence: GB)
  Receive Date: 20130307
  Receipt Date: 20130307
  Transmission Date: 20140127
  Serious: Yes (Other)
  Sender: FDA-Public Use
  Company Number: PHHY2013GB021173

PATIENT
  Age: 45 Year
  Sex: Female

DRUGS (6)
  1. DIAZEPAM [Suspect]
  2. HALOPERIDOL [Suspect]
  3. DROLEPTAN [Suspect]
  4. DEPIXOL [Suspect]
  5. VALIUM [Suspect]
  6. SPARINE [Suspect]

REACTIONS (5)
  - Suicide attempt [Unknown]
  - Victim of child abuse [Unknown]
  - Self injurious behaviour [Unknown]
  - Intentional drug misuse [Unknown]
  - Overdose [Unknown]
